FAERS Safety Report 22379222 (Version 1)
Quarter: 2023Q2

REPORT INFORMATION
  Report Type: Spontaneous
  Country: ES (occurrence: ES)
  Receive Date: 20230529
  Receipt Date: 20230529
  Transmission Date: 20230722
  Serious: Yes (Hospitalization)
  Sender: FDA-Public Use
  Company Number: ES-SUN PHARMACEUTICAL INDUSTRIES LTD-2023RR-391751

PATIENT
  Age: 75 Year
  Sex: Female

DRUGS (10)
  1. AZITHROMYCIN [Suspect]
     Active Substance: AZITHROMYCIN
     Indication: Respiratory tract infection
     Dosage: 500 MG/24H
     Route: 065
     Dates: start: 20221023, end: 20221026
  2. LORAZEPAM [Concomitant]
     Active Substance: LORAZEPAM
     Indication: Product used for unknown indication
     Dosage: 1.5MG/24H
     Route: 065
  3. SINTROM [Concomitant]
     Active Substance: ACENOCOUMAROL
     Indication: Venous thrombosis
     Dosage: 2 MG/24H
     Route: 065
     Dates: start: 20101005
  4. ESOMEPRAZOLE [Concomitant]
     Active Substance: ESOMEPRAZOLE
     Indication: Cough
     Dosage: 40MG/12H
     Route: 065
  5. CLOBEX [Concomitant]
     Active Substance: CLOBETASOL PROPIONATE
     Indication: Lichen planus
     Dosage: 7.5ML/72H
     Dates: start: 20190625
  6. ATROVENT [Concomitant]
     Active Substance: IPRATROPIUM BROMIDE
     Indication: Asthma
     Dosage: 40MCG/12H
     Route: 065
     Dates: start: 20181004
  7. CALCIFEDIOL [Concomitant]
     Active Substance: CALCIFEDIOL
     Indication: Osteoporosis
     Dosage: 16000 IU/30 DAYS
     Route: 065
     Dates: start: 20131106
  8. TOPAMAX [Concomitant]
     Active Substance: TOPIRAMATE
     Indication: Headache
     Dosage: 50MG
     Route: 065
     Dates: start: 20220606
  9. PROLIA [Concomitant]
     Active Substance: DENOSUMAB
     Indication: Osteoporosis
     Dosage: 60MG
     Route: 065
     Dates: start: 20181215
  10. Candersartan [Concomitant]
     Indication: Hypertension
     Dosage: 1 COMPRIMAT DAILY
     Route: 065
     Dates: start: 20170307

REACTIONS (1)
  - Diarrhoea [Recovered/Resolved]

NARRATIVE: CASE EVENT DATE: 20221026
